FAERS Safety Report 8251445-3 (Version None)
Quarter: 2012Q1

REPORT INFORMATION
  Report Type: 
  Country: None (occurrence: None)
  Receive Date: 20120321
  Receipt Date: 20110906
  Transmission Date: 20120608
  Serious: Yes (Other)
  Sender: FDA-Public Use
  Company Number: 2010026527

PATIENT
  Sex: Female
  Weight: 86.1834 kg

DRUGS (2)
  1. RHOPHYLAC [Suspect]
     Dosage: INTRAVENOUS
     Route: 042
     Dates: start: 20081006, end: 20081006
  2. RHOPHYLAC [Suspect]
     Dosage: INTRAVENOUS
     Route: 042
     Dates: start: 20081216, end: 20081216

REACTIONS (2)
  - RHESUS ANTIBODIES [None]
  - DRUG INEFFECTIVE [None]
